FAERS Safety Report 6771513-2 (Version None)
Quarter: 2010Q2

REPORT INFORMATION
  Report Type: 
  Country: None (occurrence: None)
  Receive Date: 20100616
  Receipt Date: 20100609
  Transmission Date: 20101027
  Serious: No
  Sender: FDA-Public Use
  Company Number: ES-ROCHE-706940

PATIENT
  Sex: Female
  Weight: 76.6 kg

DRUGS (1)
  1. ROACTEMRA [Suspect]
     Indication: RHEUMATOID ARTHRITIS
     Route: 042
     Dates: start: 20090210

REACTIONS (3)
  - PHOTOSENSITIVITY REACTION [None]
  - PRURITUS [None]
  - RASH [None]
